FAERS Safety Report 8533556-8 (Version None)
Quarter: 2012Q3

REPORT INFORMATION
  Report Type: 
  Country: None (occurrence: None)
  Receive Date: 20120717
  Receipt Date: 20120717
  Transmission Date: 20120928
  Serious: Yes (Disabling, Other)
  Sender: FDA-Public Use
  Company Number: None

PATIENT
  Age: 49 Year
  Sex: Male
  Weight: 87.9978 kg

DRUGS (1)
  1. FINASTERIDE [Suspect]
     Indication: ALOPECIA
     Dosage: 2.5MG 1 DAILY PO
     Route: 048
     Dates: start: 20100501, end: 20111201

REACTIONS (5)
  - FEELING ABNORMAL [None]
  - BLOOD TESTOSTERONE INCREASED [None]
  - FATIGUE [None]
  - ERECTILE DYSFUNCTION [None]
  - AMNESIA [None]
